FAERS Safety Report 4317500-5 (Version None)
Quarter: 2004Q1

REPORT INFORMATION
  Report Type: 
  Country: None (occurrence: None)
  Receive Date: 20040312
  Receipt Date: 20040309
  Transmission Date: 20041129
  Serious: Yes (Hospitalization)
  Sender: FDA-Public Use
  Company Number: STA-AE-04-MTX-098

PATIENT
  Age: 72 Year
  Sex: Female

DRUGS (8)
  1. RHEUMATREX [Suspect]
     Indication: RHEUMATOID ARTHRITIS
     Dosage: 4 MG 1 X PER 1 WK, ORAL
     Route: 048
     Dates: start: 20030801, end: 20031115
  2. LASIX [Concomitant]
  3. ALDACTONE [Concomitant]
  4. WARFARIN SODIUM [Concomitant]
  5. SELBEX [Concomitant]
  6. ZOLPIDEM [Concomitant]
  7. PERSANTIN [Concomitant]
  8. RANITIDINE [Concomitant]

REACTIONS (5)
  - ABDOMINAL PAIN UPPER [None]
  - BONE MARROW DEPRESSION [None]
  - DEHYDRATION [None]
  - GASTRITIS EROSIVE [None]
  - INTERSTITIAL LUNG DISEASE [None]
